FAERS Safety Report 23864749 (Version 1)
Quarter: 2024Q2

REPORT INFORMATION
  Report Type: Spontaneous
  Country: CA (occurrence: None)
  Receive Date: 20240516
  Receipt Date: 20240516
  Transmission Date: 20240715
  Serious: Yes (Hospitalization)
  Sender: FDA-Public Use
  Company Number: CA-ROCHE-3559226

PATIENT

DRUGS (8)
  1. ACTEMRA [Suspect]
     Active Substance: TOCILIZUMAB
     Indication: Juvenile idiopathic arthritis
     Route: 042
  2. ACTEMRA [Suspect]
     Active Substance: TOCILIZUMAB
     Route: 042
  3. ENBREL [Suspect]
     Active Substance: BENZYL ALCOHOL\ETANERCEPT
     Indication: Juvenile idiopathic arthritis
     Route: 058
  4. ENBREL [Suspect]
     Active Substance: BENZYL ALCOHOL\ETANERCEPT
     Route: 058
  5. METHOTREXATE [Suspect]
     Active Substance: METHOTREXATE
     Indication: Juvenile idiopathic arthritis
     Route: 058
  6. NAPROXEN [Suspect]
     Active Substance: NAPROXEN
     Indication: Juvenile idiopathic arthritis
     Route: 065
  7. ORENCIA [Suspect]
     Active Substance: ABATACEPT
     Indication: Juvenile idiopathic arthritis
     Route: 042
  8. ACTEMRA [Suspect]
     Active Substance: TOCILIZUMAB
     Indication: Juvenile idiopathic arthritis
     Route: 058

REACTIONS (21)
  - Adrenal insufficiency [Unknown]
  - Antibody test positive [Unknown]
  - Arthritis [Unknown]
  - Body height below normal [Unknown]
  - Bone density decreased [Unknown]
  - C-reactive protein increased [Unknown]
  - Condition aggravated [Unknown]
  - Diarrhoea [Unknown]
  - Drug intolerance [Unknown]
  - Human antichimeric antibody positive [Unknown]
  - Juvenile idiopathic arthritis [Unknown]
  - Loss of personal independence in daily activities [Unknown]
  - Obesity [Unknown]
  - Off label use [Unknown]
  - Polyarthritis [Unknown]
  - Psoriasis [Unknown]
  - Red blood cell sedimentation rate increased [Unknown]
  - Septic shock [Unknown]
  - Synovitis [Unknown]
  - Underdose [Unknown]
  - Vomiting [Unknown]
